FAERS Safety Report 7477334-X (Version None)
Quarter: 2011Q2

REPORT INFORMATION
  Report Type: 
  Country: None (occurrence: None)
  Receive Date: 20110513
  Receipt Date: 20110502
  Transmission Date: 20111010
  Serious: No
  Sender: FDA-Public Use
  Company Number: US-BIOGENIDEC-2011BI016516

PATIENT
  Sex: Female

DRUGS (1)
  1. TYSABRI [Suspect]
     Indication: MULTIPLE SCLEROSIS
     Route: 042
     Dates: start: 20100713

REACTIONS (7)
  - VISUAL IMPAIRMENT [None]
  - MALAISE [None]
  - DYSSTASIA [None]
  - ARTHRALGIA [None]
  - MIGRAINE [None]
  - STRESS [None]
  - MULTIPLE SCLEROSIS RELAPSE [None]
